FAERS Safety Report 15620156 (Version 2)
Quarter: 2018Q4

REPORT INFORMATION
  Report Type: Spontaneous
  Country: US (occurrence: US)
  Receive Date: 20181115
  Receipt Date: 20181228
  Transmission Date: 20190205
  Serious: No
  Sender: FDA-Public Use
  Company Number: US-ASTRAZENECA-2018SF41369

PATIENT
  Sex: Female
  Weight: 45.4 kg

DRUGS (3)
  1. TUDORZA PRESSAIR [Suspect]
     Active Substance: ACLIDINIUM BROMIDE
     Dosage: 400 UG, ONE PUFF, TWICE A DAY
     Route: 055
     Dates: start: 201711, end: 2018
  2. TUDORZA PRESSAIR [Suspect]
     Active Substance: ACLIDINIUM BROMIDE
     Route: 055
     Dates: start: 201806
  3. DULERA [Concomitant]
     Active Substance: FORMOTEROL FUMARATE DIHYDRATE\MOMETASONE FUROATE
     Dosage: EVERY DAY, BEGINNING 2 YEARS AGO (BEFORE BEGINNING TUDORZA)
     Route: 055

REACTIONS (8)
  - Cough [Unknown]
  - Tremor [Unknown]
  - Dyspnoea [Unknown]
  - Sinusitis [Unknown]
  - Intentional product misuse [Unknown]
  - Epistaxis [Unknown]
  - Retching [Unknown]
  - Device malfunction [Unknown]
